FAERS Safety Report 24869172 (Version 1)
Quarter: 2025Q1

REPORT INFORMATION
  Report Type: Spontaneous
  Country: US (occurrence: US)
  Receive Date: 20250121
  Receipt Date: 20250121
  Transmission Date: 20250409
  Serious: No
  Sender: PFIZER
  Company Number: US-PFIZER INC-202500010972

PATIENT

DRUGS (1)
  1. ZAVEGEPANT [Suspect]
     Active Substance: ZAVEGEPANT
     Indication: Migraine

REACTIONS (1)
  - Dysgeusia [Recovered/Resolved]
